FAERS Safety Report 21358876 (Version 1)
Quarter: 2022Q3

REPORT INFORMATION
  Report Type: Spontaneous
  Country: CL (occurrence: CL)
  Receive Date: 20220921
  Receipt Date: 20220921
  Transmission Date: 20221026
  Serious: Yes (Other)
  Sender: FDA-Public Use
  Company Number: CL-MLMSERVICE-20220908-3783532-1

PATIENT
  Age: 28 Year
  Sex: Female

DRUGS (4)
  1. CARBOPLATIN [Suspect]
     Active Substance: CARBOPLATIN
     Indication: Ovarian cancer
     Dosage: THREE CYCLES
     Dates: start: 201904
  2. PACLITAXEL [Suspect]
     Active Substance: PACLITAXEL
     Indication: Squamous cell carcinoma
     Dosage: THREE CYCLES
     Dates: start: 201904
  3. PACLITAXEL [Suspect]
     Active Substance: PACLITAXEL
     Indication: Ovarian cancer
     Dosage: THREE CYCLES
     Dates: start: 201904
  4. CARBOPLATIN [Suspect]
     Active Substance: CARBOPLATIN
     Indication: Metastases to peritoneum
     Dosage: THREE CYCLES
     Dates: start: 201904

REACTIONS (1)
  - Pelvic venous thrombosis [Unknown]

NARRATIVE: CASE EVENT DATE: 20190101
